FAERS Safety Report 5961636-X (Version None)
Quarter: 2008Q4

REPORT INFORMATION
  Report Type: 
  Country: None (occurrence: None)
  Receive Date: 20081114
  Receipt Date: 20080925
  Transmission Date: 20090506
  Serious: No
  Sender: FDA-Public Use
  Company Number: WAES 0809USA04488

PATIENT
  Age: 50 Year
  Sex: Female

DRUGS (4)
  1. ISENTRESS [Suspect]
     Indication: HIV INFECTION
     Dosage: PO
     Route: 048
     Dates: start: 20071201
  2. NORVIR [Concomitant]
  3. REYATAZ [Concomitant]
  4. TRUVADA [Concomitant]

REACTIONS (1)
  - LIPODYSTROPHY ACQUIRED [None]
